FAERS Safety Report 12104736 (Version 2)
Quarter: 2016Q1

REPORT INFORMATION
  Report Type: Spontaneous
  Country: JP (occurrence: JP)
  Receive Date: 20160223
  Receipt Date: 20160318
  Transmission Date: 20160526
  Serious: Yes (Hospitalization)
  Sender: FDA-Public Use
  Company Number: JP-JNJFOC-20160214190

PATIENT
  Age: 43 Year
  Sex: Male
  Weight: 91 kg

DRUGS (1)
  1. CANAGLU [Suspect]
     Active Substance: CANAGLIFLOZIN
     Indication: TYPE 2 DIABETES MELLITUS
     Route: 048
     Dates: start: 20151226, end: 20160212

REACTIONS (1)
  - Chronic sinusitis [Recovering/Resolving]

NARRATIVE: CASE EVENT DATE: 20160124
